FAERS Safety Report 10359345 (Version 1)
Quarter: 2014Q3

REPORT INFORMATION
  Report Type: Spontaneous
  Country: US (occurrence: None)
  Receive Date: 20140801
  Receipt Date: 20140801
  Transmission Date: 20150326
  Serious: No
  Sender: FDA-Public Use
  Company Number: None

PATIENT
  Age: 71 Year
  Sex: Female
  Weight: 67.59 kg

DRUGS (22)
  1. MYRBETRIQ [Suspect]
     Active Substance: MIRABEGRON
     Indication: INCONTINENCE
     Dosage: 25 MG 1 DAILY BY MOUTH
     Route: 048
     Dates: start: 20140701
  2. MYSTATIN [Concomitant]
  3. ALKALOID [Concomitant]
  4. VIT K2 [Concomitant]
  5. SYNTHROID [Concomitant]
     Active Substance: LEVOTHYROXINE SODIUM
  6. LATISSE [Concomitant]
     Active Substance: BIMATOPROST
  7. GINKGO BILOBA [Concomitant]
     Active Substance: GINKGO
  8. GLUCOSAMIN CHONDROITIN [Concomitant]
  9. MENS ROGAINE UNSCENTED FORMULA [Concomitant]
     Active Substance: MINOXIDIL
  10. MULTIVIT B12, C [Concomitant]
  11. ZINC [Concomitant]
     Active Substance: ZINC\ZINC CHLORIDE
  12. MAGNESIUM [Concomitant]
     Active Substance: MAGNESIUM
  13. EVISTA [Concomitant]
     Active Substance: RALOXIFENE HYDROCHLORIDE
  14. DESONIDE. [Concomitant]
     Active Substance: DESONIDE
  15. CALCIUM D3 [Concomitant]
     Active Substance: CALCIUM\CHOLECALCIFEROL
  16. TRAZODINE [Concomitant]
  17. ASTRACE [Concomitant]
  18. FOLIC ACID. [Concomitant]
     Active Substance: FOLIC ACID
  19. IRON [Concomitant]
     Active Substance: IRON
  20. PROBIOTIC [Concomitant]
     Active Substance: PROBIOTICS NOS
  21. LOSARTAN [Concomitant]
     Active Substance: LOSARTAN
  22. GUAIFENESIN. [Concomitant]
     Active Substance: GUAIFENESIN

REACTIONS (4)
  - Pain [None]
  - Rash [None]
  - Pruritus [None]
  - Nipple disorder [None]

NARRATIVE: CASE EVENT DATE: 20140708
